FAERS Safety Report 9963336 (Version 1)
Quarter: 2014Q1

REPORT INFORMATION
  Report Type: Spontaneous
  Country: FR (occurrence: FR)
  Receive Date: 20140305
  Receipt Date: 20140305
  Transmission Date: 20141002
  Serious: Yes (Hospitalization, Other)
  Sender: FDA-Public Use
  Company Number: FR-BRISTOL-MYERS SQUIBB COMPANY-20297255

PATIENT
  Age: 67 Year
  Sex: Male

DRUGS (7)
  1. SPRYCEL [Suspect]
     Indication: MASTOCYTOSIS
     Route: 048
     Dates: start: 201005, end: 20131118
  2. AERIUS [Concomitant]
     Dosage: FILM-COATED TABLET
     Route: 048
  3. AZANTAC [Concomitant]
     Dosage: FILM-COATED TABLET
     Route: 048
  4. XYZALL [Concomitant]
     Dosage: FILM-COATED TABLET
     Route: 048
  5. COVERSYL [Concomitant]
     Dosage: 1DF=1 TAB?SCORED FILM-COATED TABLET 5MG
     Route: 048
  6. FOSAMAX [Concomitant]
     Dosage: 1DF=1 TABLET?70MG TABS
     Route: 048
  7. CALCIUM CARBONATE + CHOLECALCIFEROL [Concomitant]
     Route: 048

REACTIONS (5)
  - Malignant melanoma stage IV [Recovered/Resolved]
  - Pulmonary arterial hypertension [Recovering/Resolving]
  - Pleural effusion [Recovering/Resolving]
  - Pneumonia legionella [Unknown]
  - Off label use [Unknown]
